FAERS Safety Report 16943209 (Version 1)
Quarter: 2019Q4

REPORT INFORMATION
  Report Type: Spontaneous
  Country: VI (occurrence: VI)
  Receive Date: 20191021
  Receipt Date: 20191021
  Transmission Date: 20200122
  Serious: No
  Sender: FDA-Public Use
  Company Number: VI-BRISTOL-MYERS SQUIBB COMPANY-BMS-2019-100019

PATIENT
  Sex: Female

DRUGS (1)
  1. ELIQUIS [Suspect]
     Active Substance: APIXABAN
     Indication: DEEP VEIN THROMBOSIS
     Dosage: UNAVAILABLE
     Route: 065
     Dates: start: 20190708

REACTIONS (2)
  - Muscular weakness [Unknown]
  - Memory impairment [Unknown]
